FAERS Safety Report 7959376-0 (Version None)
Quarter: 2011Q4

REPORT INFORMATION
  Report Type: 
  Country: None (occurrence: None)
  Receive Date: 20111206
  Receipt Date: 20111130
  Transmission Date: 20120403
  Serious: Yes (Other)
  Sender: FDA-Public Use
  Company Number: GB-PFIZER INC-2011293030

PATIENT
  Age: 68 Year
  Sex: Female
  Weight: 81 kg

DRUGS (4)
  1. VARENICLINE TARTRATE [Suspect]
     Indication: SMOKING CESSATION THERAPY
     Dosage: 1 MG, 2X/DAY
     Route: 048
     Dates: start: 20110926, end: 20111010
  2. LANSOPRAZOLE [Concomitant]
     Dosage: 30 MG, 1X/DAY
     Route: 048
     Dates: start: 20110501
  3. SIMVASTATIN [Concomitant]
     Dosage: 40 MG, 1X/DAY
     Route: 048
     Dates: start: 20070101
  4. AMLODIPINE [Concomitant]
     Dosage: 5 MG, 1X/DAY
     Route: 048
     Dates: start: 20070101

REACTIONS (5)
  - CONSTIPATION [None]
  - ABDOMINAL DISTENSION [None]
  - FEELING ABNORMAL [None]
  - HEADACHE [None]
  - DEPRESSED MOOD [None]
